FAERS Safety Report 7231379 (Version 5)
Quarter: 2019Q1

REPORT INFORMATION
  Report Type: Spontaneous
  Country: FR (occurrence: FR)
  Receive Date: 20091228
  Receipt Date: 20190124
  Transmission Date: 20190418
  Serious: Yes (Life-Threatening, Hospitalization)
  Sender: FDA-Public Use
  Company Number: FR-PFIZER INC-2009310180

PATIENT
  Age: 55 Year
  Sex: Male

DRUGS (12)
  1. LYRICA [Suspect]
     Active Substance: PREGABALIN
     Indication: MOTOR DYSFUNCTION
     Dosage: 150 MG, 2X/DAY (300 MG/DAY)
     Route: 048
     Dates: start: 20090715, end: 20090929
  2. LIORESAL [Concomitant]
     Active Substance: BACLOFEN
     Indication: MOTOR DYSFUNCTION
     Dosage: 5 MG, 3X/DAY
  3. LIORESAL [Concomitant]
     Active Substance: BACLOFEN
     Indication: AMYOTROPHY
  4. LYSANXIA [Concomitant]
     Active Substance: PRAZEPAM
     Dosage: 10 MG, 2X/DAY
  5. VENTOLINE [Concomitant]
     Active Substance: ALBUTEROL
     Dosage: UNK
  6. PAROXETINE. [Concomitant]
     Active Substance: PAROXETINE
     Dosage: 20 MG, 1X/DAY
  7. LYRICA [Suspect]
     Active Substance: PREGABALIN
     Indication: PARAPLEGIA
  8. LIORESAL [Concomitant]
     Active Substance: BACLOFEN
     Indication: ATAXIA
  9. LYRICA [Suspect]
     Active Substance: PREGABALIN
     Indication: ATAXIA
  10. LYRICA [Suspect]
     Active Substance: PREGABALIN
     Indication: AMYOTROPHY
  11. LYRICA [Suspect]
     Active Substance: PREGABALIN
     Indication: MUSCLE CONTRACTIONS INVOLUNTARY
  12. SPIRIVA [Concomitant]
     Active Substance: TIOTROPIUM BROMIDE MONOHYDRATE
     Dosage: UNK

REACTIONS (4)
  - Cardiac failure [Recovered/Resolved]
  - Respiratory failure [Recovered/Resolved]
  - Bronchospasm [Recovered/Resolved]
  - Urinary incontinence [Unknown]

NARRATIVE: CASE EVENT DATE: 20090831
